FAERS Safety Report 15439085 (Version 3)
Quarter: 2019Q1

REPORT INFORMATION
  Report Type: Spontaneous
  Country: US (occurrence: US)
  Receive Date: 20180928
  Receipt Date: 20190311
  Transmission Date: 20190417
  Serious: No
  Sender: FDA-Public Use
  Company Number: US-PFIZER INC-2018371118

PATIENT
  Age: 57 Year
  Sex: Female

DRUGS (2)
  1. LYRICA [Suspect]
     Active Substance: PREGABALIN
     Dosage: 100 MG, 2X/DAY (100 MG BID)
  2. LYRICA [Suspect]
     Active Substance: PREGABALIN
     Dosage: 1 DF, 2X/DAY (^1 TABLET^ TWICE DAILY)
     Route: 048

REACTIONS (1)
  - Pain [Unknown]
